FAERS Safety Report 11310257 (Version 1)
Quarter: 2015Q3

REPORT INFORMATION
  Report Type: Spontaneous
  Country: US (occurrence: US)
  Receive Date: 20150724
  Receipt Date: 20150724
  Transmission Date: 20151125
  Serious: No
  Sender: FDA-Public Use
  Company Number: US-PFIZER INC-2015240193

PATIENT
  Age: 18 Year
  Sex: Female

DRUGS (1)
  1. SUTENT [Suspect]
     Active Substance: SUNITINIB MALATE
     Indication: NEOPLASM MALIGNANT
     Dosage: 50 MG, 1X/DAY

REACTIONS (5)
  - Renal disorder [Unknown]
  - Lung disorder [Unknown]
  - Weight decreased [Unknown]
  - Disease progression [Unknown]
  - Neoplasm malignant [Unknown]
